FAERS Safety Report 13909370 (Version 1)
Quarter: 2017Q3

REPORT INFORMATION
  Report Type: Spontaneous
  Country: MX (occurrence: MX)
  Receive Date: 20170828
  Receipt Date: 20170828
  Transmission Date: 20171127
  Serious: Yes (Hospitalization, Other)
  Sender: FDA-Public Use
  Company Number: MX-TORRENT-00000101

PATIENT
  Age: 71 Year
  Sex: Male

DRUGS (3)
  1. MIRTAZAPINE. [Concomitant]
     Active Substance: MIRTAZAPINE
  2. MEMANTINE. [Suspect]
     Active Substance: MEMANTINE
  3. AMISULPRIDE [Concomitant]
     Active Substance: AMISULPRIDE

REACTIONS (2)
  - Hypertonia [Unknown]
  - Dystonia [Recovered/Resolved]

NARRATIVE: CASE EVENT DATE: 20170809
